FAERS Safety Report 25260260 (Version 1)
Quarter: 2025Q2

REPORT INFORMATION
  Report Type: Spontaneous
  Country: US (occurrence: None)
  Receive Date: 20250501
  Receipt Date: 20250501
  Transmission Date: 20250717
  Serious: No
  Sender: FDA-CTU
  Company Number: None

PATIENT
  Age: 77 Year
  Sex: Male

DRUGS (5)
  1. EMPAGLIFLOZIN [Suspect]
     Active Substance: EMPAGLIFLOZIN
     Indication: Diabetes mellitus
     Dosage: FREQUENCY : DAILY;?
     Route: 048
     Dates: end: 20250329
  2. Insulin aspart 8 units [Concomitant]
  3. Insulin glargine 15 units [Concomitant]
     Route: 058
  4. METFORMIN [Concomitant]
     Active Substance: METFORMIN HYDROCHLORIDE
     Dosage: FREQUENCY : TWICE A DAY;?
     Route: 048
  5. Semaglutide 0.5mg [Concomitant]
     Dosage: FREQUENCY : WEEKLY;?
     Route: 058

REACTIONS (18)
  - Back pain [None]
  - Laboratory test abnormal [None]
  - Arthralgia [None]
  - Full blood count abnormal [None]
  - C-reactive protein increased [None]
  - Red blood cell sedimentation rate increased [None]
  - Pain [None]
  - Sepsis [None]
  - Diarrhoea [None]
  - Loss of consciousness [None]
  - Head injury [None]
  - Bacteraemia [None]
  - Muscle spasms [None]
  - Nausea [None]
  - Vomiting [None]
  - Streptococcal bacteraemia [None]
  - Hypophagia [None]
  - Gastrointestinal haemorrhage [None]

NARRATIVE: CASE EVENT DATE: 20250329
